FAERS Safety Report 8334472-7 (Version None)
Quarter: 2012Q2

REPORT INFORMATION
  Report Type: 
  Country: None (occurrence: None)
  Receive Date: 20120503
  Receipt Date: 20120426
  Transmission Date: 20120825
  Serious: Yes (Other)
  Sender: FDA-Public Use
  Company Number: DE-EISAI INC-E7389-02212-SPO-DE

PATIENT
  Sex: Female
  Weight: 67 kg

DRUGS (3)
  1. ALOXI [Concomitant]
     Route: 065
  2. DEXAMETHASAN [Concomitant]
     Route: 065
  3. HALAVEN [Suspect]
     Route: 041
     Dates: start: 20111123

REACTIONS (1)
  - HALLUCINATION [None]
